FAERS Safety Report 7421592-4 (Version None)
Quarter: 2011Q2

REPORT INFORMATION
  Report Type: 
  Country: None (occurrence: None)
  Receive Date: 20110408
  Receipt Date: 20110324
  Transmission Date: 20111010
  Serious: Yes (Other)
  Sender: FDA-Public Use
  Company Number: AUR-APL-2011-01105

PATIENT
  Age: 41 Year
  Sex: Male
  Weight: 94.1 kg

DRUGS (9)
  1. ZYRTEC [Concomitant]
  2. LEVOTHYROXINE SODIUM [Concomitant]
  3. FLUTICASONE PROPIONATE [Concomitant]
  4. PF-02341066 [Suspect]
     Indication: NON-SMALL CELL LUNG CANCER
     Dosage: 250MG, DAILY;
     Dates: start: 20070122
  5. BENAZEPRIL HYDROCHLORIDE [Suspect]
     Indication: HYPERTENSION
     Dosage: 20MG, DAILY,
     Dates: start: 20070122
  6. NIACIN [Concomitant]
  7. OMEPRAZOLE [Concomitant]
  8. ROSUVASTATIN CALCIUM [Concomitant]
  9. BUDESONIDE [Concomitant]

REACTIONS (3)
  - HYPERTENSION [None]
  - VISUAL FIELD DEFECT [None]
  - OPTIC ATROPHY [None]
